FAERS Safety Report 6784692-8 (Version None)
Quarter: 2010Q2

REPORT INFORMATION
  Report Type: 
  Country: None (occurrence: None)
  Receive Date: 20100622
  Receipt Date: 20100611
  Transmission Date: 20101027
  Serious: Yes (Other)
  Sender: FDA-Public Use
  Company Number: PL-JNJFOC-20100604365

PATIENT
  Age: 12 Year
  Sex: Male
  Weight: 50 kg

DRUGS (13)
  1. REMICADE [Suspect]
     Indication: CROHN'S DISEASE
     Dosage: 3RD INFUSION
     Route: 042
  2. FURAGIN [Concomitant]
     Dosage: 2 TABLETS AT NIGHT
  3. MESALAMINE [Concomitant]
  4. ENCORTON [Concomitant]
  5. POLPRAZOL [Concomitant]
  6. SOLUVIT [Concomitant]
  7. CREON [Concomitant]
  8. OMEGA 3 FATTY ACIDS [Concomitant]
  9. FOLIC ACID [Concomitant]
  10. VITAMIN B6 [Concomitant]
  11. VITAMIN C [Concomitant]
  12. POTASSIUM [Concomitant]
  13. HYDROCORTISONE [Concomitant]
     Indication: PREMEDICATION

REACTIONS (3)
  - ANAPHYLACTIC REACTION [None]
  - INFUSION RELATED REACTION [None]
  - URINARY TRACT INFECTION [None]
